FAERS Safety Report 12507366 (Version 2)
Quarter: 2016Q3

REPORT INFORMATION
  Report Type: Spontaneous
  Country: JP (occurrence: JP)
  Receive Date: 20160629
  Receipt Date: 20160705
  Transmission Date: 20161109
  Serious: Yes (Other)
  Sender: FDA-Public Use
  Company Number: JP-ROCHE-1782458

PATIENT
  Age: 71 Year
  Sex: Female

DRUGS (2)
  1. LUCENTIS [Suspect]
     Active Substance: RANIBIZUMAB
     Indication: OPTIC DISC DISORDER
     Dosage: UNK
     Route: 050
  2. LUCENTIS [Suspect]
     Active Substance: RANIBIZUMAB
     Indication: AGE-RELATED MACULAR DEGENERATION
     Dosage: IN LEFT EYE
     Route: 050
     Dates: start: 2005, end: 2005

REACTIONS (11)
  - Retinal detachment [Unknown]
  - Optic discs blurred [Unknown]
  - Staphyloma [Unknown]
  - Intraocular pressure increased [Unknown]
  - Injection site pain [Unknown]
  - Off label use [Unknown]
  - Retinal degeneration [Unknown]
  - Macular degeneration [Unknown]
  - Detachment of retinal pigment epithelium [Unknown]
  - Cataract cortical [Unknown]
  - Visual acuity reduced [Unknown]

NARRATIVE: CASE EVENT DATE: 2012
